FAERS Safety Report 18707270 (Version 1)
Quarter: 2021Q1

REPORT INFORMATION
  Report Type: Spontaneous
  Country: US (occurrence: US)
  Receive Date: 20210106
  Receipt Date: 20210106
  Transmission Date: 20210419
  Serious: No
  Sender: FDA-Public Use
  Company Number: US-MYLANLABS-2020M1102189

PATIENT
  Age: 59 Year
  Sex: Female

DRUGS (1)
  1. ESTRADIOL TRANSDERMAL SYSTEM [Suspect]
     Active Substance: ESTRADIOL
     Indication: HORMONE REPLACEMENT THERAPY
     Dosage: 1, TWICE/ WEEK
     Route: 062
     Dates: start: 20201207, end: 20201208

REACTIONS (3)
  - Burning sensation [Not Recovered/Not Resolved]
  - Flushing [Not Recovered/Not Resolved]
  - Product lot number issue [Not Recovered/Not Resolved]

NARRATIVE: CASE EVENT DATE: 20201207
